FAERS Safety Report 17492178 (Version 1)
Quarter: 2020Q1

REPORT INFORMATION
  Report Type: Spontaneous
  Country: US (occurrence: US)
  Receive Date: 20200304
  Receipt Date: 20200304
  Transmission Date: 20200409
  Serious: Yes (Other)
  Sender: FDA-Public Use
  Company Number: US-JNJFOC-20200236176

PATIENT
  Sex: Female
  Weight: 80.36 kg

DRUGS (2)
  1. TYLENOL [Suspect]
     Active Substance: ACETAMINOPHEN
     Indication: PREMEDICATION
     Route: 065
  2. GABAPENTIN. [Suspect]
     Active Substance: GABAPENTIN
     Indication: PREMEDICATION
     Route: 065

REACTIONS (3)
  - Anaphylactoid reaction [Unknown]
  - Off label use [Unknown]
  - Product use in unapproved indication [Unknown]
